FAERS Safety Report 8140983-X (Version None)
Quarter: 2012Q1

REPORT INFORMATION
  Report Type: 
  Country: None (occurrence: None)
  Receive Date: 20120214
  Receipt Date: 20120214
  Transmission Date: 20120608
  Serious: Yes (Life-Threatening, Hospitalization)
  Sender: FDA-Public Use
  Company Number: None

PATIENT
  Age: 51 Year
  Sex: Male

DRUGS (2)
  1. DALTEPARIN SODIUM [Suspect]
     Indication: THROMBOSIS PROPHYLAXIS
     Dosage: 0.5 ML EVERY DAY SQ
     Route: 058
     Dates: start: 20120104, end: 20120105
  2. CLOPIDOGREL [Suspect]
     Dosage: 300 MG ONCE PO
     Route: 048
     Dates: start: 20120104, end: 20120104

REACTIONS (9)
  - LETHARGY [None]
  - PERIPHERAL ISCHAEMIA [None]
  - HYPOTENSION [None]
  - HAEMATOMA [None]
  - PULSE ABSENT [None]
  - RETROPERITONEAL HAEMATOMA [None]
  - PAIN IN EXTREMITY [None]
  - VASCULAR PSEUDOANEURYSM [None]
  - UNRESPONSIVE TO STIMULI [None]
